FAERS Safety Report 12669823 (Version 1)
Quarter: 2016Q3

REPORT INFORMATION
  Report Type: Spontaneous
  Country: JP (occurrence: JP)
  Receive Date: 20160819
  Receipt Date: 20160819
  Transmission Date: 20161109
  Serious: Yes (Other)
  Sender: FDA-Public Use
  Company Number: JP-PFIZER INC-2016292383

PATIENT
  Age: 66 Year
  Sex: Male
  Weight: 62 kg

DRUGS (4)
  1. LYRICA [Suspect]
     Active Substance: PREGABALIN
     Dosage: 75 MG, TWICE DAILY
     Route: 048
     Dates: start: 20150315, end: 20160627
  2. TRAMCET [Concomitant]
     Active Substance: ACETAMINOPHEN\TRAMADOL
     Dosage: 1 TABLET TWICE DAILY
     Route: 048
     Dates: start: 20150325, end: 20151030
  3. NOVAMIN [Concomitant]
     Active Substance: PROCHLORPERAZINE MALEATE
     Dosage: 1 TABLET TWICE DAILY
     Route: 048
     Dates: start: 20150325, end: 20151030
  4. LYRICA [Suspect]
     Active Substance: PREGABALIN
     Dosage: 75 MG, ONCE DAILY
     Route: 048
     Dates: start: 20160628

REACTIONS (3)
  - Disease recurrence [Not Recovered/Not Resolved]
  - Retinal vein occlusion [Not Recovered/Not Resolved]
  - Visual field defect [Not Recovered/Not Resolved]

NARRATIVE: CASE EVENT DATE: 201601
